FAERS Safety Report 4780541-8 (Version None)
Quarter: 2005Q3

REPORT INFORMATION
  Report Type: 
  Country: None (occurrence: None)
  Receive Date: 20050926
  Receipt Date: 20050914
  Transmission Date: 20060218
  Serious: Yes (Death)
  Sender: FDA-Public Use
  Company Number: 2005127628

PATIENT
  Age: 14 Year

DRUGS (4)
  1. SERTRALINE HCL [Suspect]
     Indication: ILL-DEFINED DISORDER
  2. AMPHETAMINE (AMFETAMINE) [Suspect]
     Indication: ILL-DEFINED DISORDER
  3. DEXTROAMPHETAMINE (DEXAMFETAMINE) [Suspect]
     Indication: ILL-DEFINED DISORDER
  4. ATOMOXETINE HYDROCHLORIDE (ATOMOXETINE HYDROCHLORIDE) [Suspect]
     Indication: ILL-DEFINED DISORDER

REACTIONS (2)
  - CARDIAC ARREST [None]
  - RESPIRATORY ARREST [None]
